FAERS Safety Report 13065276 (Version 2)
Quarter: 2017Q1

REPORT INFORMATION
  Report Type: Report from Study
  Country: JP (occurrence: JP)
  Receive Date: 20161227
  Receipt Date: 20170308
  Transmission Date: 20170428
  Serious: Yes (Hospitalization)
  Sender: FDA-Public Use
  Company Number: JP-JNJFOC-20161214479

PATIENT
  Age: 3 Year
  Sex: Male
  Weight: 19.2 kg

DRUGS (29)
  1. SULBACILLIN [Concomitant]
     Active Substance: AMPICILLIN SODIUM\SULBACTAM SODIUM
     Indication: LYMPHADENITIS
     Route: 042
     Dates: start: 20160730, end: 20160730
  2. PREDNISOLONE SODIUM SUCCINATE [Concomitant]
     Active Substance: PREDNISOLONE SODIUM SUCCINATE
     Indication: KAWASAKI^S DISEASE
     Route: 042
     Dates: start: 20160731, end: 20160801
  3. VANCOMYCIN [Concomitant]
     Active Substance: VANCOMYCIN
     Indication: LYMPHADENITIS
     Route: 041
     Dates: start: 20160801, end: 20160801
  4. MEROPENEM. [Concomitant]
     Active Substance: MEROPENEM
     Indication: LYMPHADENITIS
     Route: 041
     Dates: start: 20160808, end: 20160808
  5. PREDNISONE. [Concomitant]
     Active Substance: PREDNISONE
     Indication: KAWASAKI^S DISEASE
     Route: 048
     Dates: start: 20160802, end: 20160807
  6. ASPIRIN. [Concomitant]
     Active Substance: ASPIRIN
     Indication: KAWASAKI^S DISEASE
     Route: 048
     Dates: start: 20160819
  7. REMICADE [Suspect]
     Active Substance: INFLIXIMAB
     Indication: KAWASAKI^S DISEASE
     Route: 042
     Dates: start: 20160730, end: 20160730
  8. MEROPENEM. [Concomitant]
     Active Substance: MEROPENEM
     Indication: LYMPHADENITIS
     Route: 041
     Dates: start: 20160806, end: 20160806
  9. PREDNISONE. [Concomitant]
     Active Substance: PREDNISONE
     Indication: KAWASAKI^S DISEASE
     Route: 048
     Dates: start: 20160826, end: 20160829
  10. PREDNISONE. [Concomitant]
     Active Substance: PREDNISONE
     Indication: KAWASAKI^S DISEASE
     Route: 048
     Dates: start: 20160823, end: 20160825
  11. SULBACILLIN [Concomitant]
     Active Substance: AMPICILLIN SODIUM\SULBACTAM SODIUM
     Indication: LYMPHADENITIS
     Route: 042
     Dates: start: 20160731, end: 20160731
  12. HUMAN NORMAL IMMUNOGLOBULIN [Concomitant]
     Active Substance: HUMAN IMMUNOGLOBULIN G
     Indication: KAWASAKI^S DISEASE
     Route: 042
     Dates: start: 20160801, end: 20160801
  13. MEROPENEM. [Concomitant]
     Active Substance: MEROPENEM
     Indication: LYMPHADENITIS
     Route: 041
     Dates: start: 20160802, end: 20160802
  14. PREDNISONE. [Concomitant]
     Active Substance: PREDNISONE
     Indication: KAWASAKI^S DISEASE
     Route: 048
     Dates: start: 20160808, end: 20160810
  15. HUMAN NORMAL IMMUNOGLOBULIN [Concomitant]
     Active Substance: HUMAN IMMUNOGLOBULIN G
     Indication: KAWASAKI^S DISEASE
     Route: 042
     Dates: start: 20160731, end: 20160731
  16. VANCOMYCIN [Concomitant]
     Active Substance: VANCOMYCIN
     Indication: LYMPHADENITIS
     Route: 041
     Dates: start: 20160803, end: 20160803
  17. PREDNISONE. [Concomitant]
     Active Substance: PREDNISONE
     Indication: KAWASAKI^S DISEASE
     Route: 048
     Dates: start: 20160830
  18. VANCOMYCIN [Concomitant]
     Active Substance: VANCOMYCIN
     Indication: LYMPHADENITIS
     Route: 041
     Dates: start: 20160731, end: 20160731
  19. VANCOMYCIN [Concomitant]
     Active Substance: VANCOMYCIN
     Indication: LYMPHADENITIS
     Route: 041
     Dates: start: 20160802, end: 20160802
  20. ASPIRIN. [Concomitant]
     Active Substance: ASPIRIN
     Indication: KAWASAKI^S DISEASE
     Route: 048
     Dates: end: 20160802
  21. ASPIRIN. [Concomitant]
     Active Substance: ASPIRIN
     Indication: KAWASAKI^S DISEASE
     Route: 048
     Dates: start: 20160812, end: 20160818
  22. ASPIRIN. [Concomitant]
     Active Substance: ASPIRIN
     Indication: KAWASAKI^S DISEASE
     Route: 048
     Dates: start: 20160803, end: 20160811
  23. VANCOMYCIN [Concomitant]
     Active Substance: VANCOMYCIN
     Indication: LYMPHADENITIS
     Route: 041
     Dates: start: 20160805, end: 20160805
  24. VANCOMYCIN [Concomitant]
     Active Substance: VANCOMYCIN
     Indication: LYMPHADENITIS
     Route: 041
     Dates: start: 20160804, end: 20160804
  25. PREDNISONE. [Concomitant]
     Active Substance: PREDNISONE
     Indication: KAWASAKI^S DISEASE
     Route: 048
     Dates: start: 20160811, end: 20160822
  26. MEROPENEM. [Concomitant]
     Active Substance: MEROPENEM
     Indication: LYMPHADENITIS
     Route: 041
     Dates: start: 20160801, end: 20160801
  27. MEROPENEM. [Concomitant]
     Active Substance: MEROPENEM
     Indication: LYMPHADENITIS
     Route: 041
     Dates: start: 20160731, end: 20160731
  28. MEROPENEM. [Concomitant]
     Active Substance: MEROPENEM
     Indication: LYMPHADENITIS
     Route: 041
     Dates: start: 20160805, end: 20160805
  29. GASTER [Concomitant]
     Active Substance: FAMOTIDINE
     Indication: PROPHYLAXIS AGAINST GASTROINTESTINAL ULCER
     Route: 048
     Dates: start: 20160803

REACTIONS (4)
  - Nasopharyngitis [Recovered/Resolved]
  - Impetigo [Recovered/Resolved]
  - Arthritis [Recovered/Resolved]
  - Constipation [Recovering/Resolving]

NARRATIVE: CASE EVENT DATE: 20160802
